FAERS Safety Report 6340691-1 (Version None)
Quarter: 2009Q3

REPORT INFORMATION
  Report Type: 
  Country: None (occurrence: None)
  Receive Date: 20090902
  Receipt Date: 20090902
  Transmission Date: 20100115
  Serious: No
  Sender: FDA-Public Use
  Company Number: None

PATIENT
  Age: 67 Year
  Sex: Female
  Weight: 48.5349 kg

DRUGS (1)
  1. PREDNISONE TAB [Suspect]
     Indication: EXPOSURE TO TOXIC AGENT
     Dosage: 6  6.5.4.3.2.1
     Dates: start: 20090824, end: 20090828

REACTIONS (7)
  - ABDOMINAL PAIN UPPER [None]
  - ASTHENIA [None]
  - HAEMORRHAGE [None]
  - INSOMNIA [None]
  - PAIN [None]
  - POLLAKIURIA [None]
  - PYREXIA [None]
